FAERS Safety Report 19386311 (Version 1)
Quarter: 2021Q2

REPORT INFORMATION
  Report Type: Spontaneous
  Country: US (occurrence: US)
  Receive Date: 20210606
  Receipt Date: 20210606
  Transmission Date: 20210717
  Serious: Yes (Other)
  Sender: FDA-Public Use
  Company Number: None

PATIENT
  Age: 61 Year
  Sex: Female
  Weight: 51.75 kg

DRUGS (3)
  1. MAVYRET [Suspect]
     Active Substance: GLECAPREVIR\PIBRENTASVIR
     Indication: HEPATITIS C
     Dosage: ?          QUANTITY:3 TABLET(S);?
     Route: 048
     Dates: start: 20210604, end: 20210606
  2. GABAPENTIN. [Concomitant]
     Active Substance: GABAPENTIN
  3. IBPROPHEN 500MG [Concomitant]
     Active Substance: IBUPROFEN

REACTIONS (1)
  - Pruritus [None]

NARRATIVE: CASE EVENT DATE: 20210605
